FAERS Safety Report 18473655 (Version 1)
Quarter: 2020Q4

REPORT INFORMATION
  Report Type: Spontaneous
  Country: CA (occurrence: CA)
  Receive Date: 20201106
  Receipt Date: 20201106
  Transmission Date: 20210114
  Serious: Yes (Other)
  Sender: FDA-Public Use
  Company Number: CA-009507513-2011CAN000323

PATIENT
  Sex: Male

DRUGS (40)
  1. ATAZANAVIR. [Interacting]
     Active Substance: ATAZANAVIR
     Indication: HIV INFECTION
     Dosage: 400.0 MILLIGRAM
     Route: 048
  2. CYCLOSPORINE. [Interacting]
     Active Substance: CYCLOSPORINE
     Route: 065
  3. DARUNAVIR [Interacting]
     Active Substance: DARUNAVIR
     Dosage: 600.0 MILLIGRAM, 2 EVERY 1 DAYS
     Route: 065
  4. STAVUDINE. [Interacting]
     Active Substance: STAVUDINE
     Indication: HIV INFECTION
     Dosage: 40.0 MILLIGRAM
     Route: 048
  5. TACROLIMUS. [Interacting]
     Active Substance: TACROLIMUS
     Indication: IMMUNOSUPPRESSANT DRUG THERAPY
     Dosage: 0.5 MILLIGRAM, 2 EVERY 1 DAYS
     Route: 065
  6. CYCLOSPORINE. [Interacting]
     Active Substance: CYCLOSPORINE
     Indication: IMMUNOSUPPRESSANT DRUG THERAPY
     Dosage: 25.0 MILLIGRAM, 2 EVERY 1 DAYS
     Route: 065
  7. RITONAVIR. [Interacting]
     Active Substance: RITONAVIR
     Dosage: 100.0 MILLIGRAM, 2 EVERY 1 DAYS
  8. TACROLIMUS. [Interacting]
     Active Substance: TACROLIMUS
     Dosage: 0.07 MILLIGRAM
     Route: 065
  9. ABACAVIR. [Interacting]
     Active Substance: ABACAVIR
     Dosage: 600.0 MILLIGRAM
     Route: 065
  10. ABACAVIR. [Interacting]
     Active Substance: ABACAVIR
     Indication: HIV INFECTION
     Dosage: UNK
     Route: 065
  11. LAMIVUDINE. [Interacting]
     Active Substance: LAMIVUDINE
     Dosage: 400.0 MILLIGRAM
     Route: 065
  12. PREDNISONE. [Interacting]
     Active Substance: PREDNISONE
     Indication: IMMUNOSUPPRESSANT DRUG THERAPY
     Dosage: UNK
     Route: 065
  13. TRUVADA [Interacting]
     Active Substance: EMTRICITABINE\TENOFOVIR DISOPROXIL FUMARATE
     Indication: HIV INFECTION
     Dosage: UNK
     Route: 065
  14. ISENTRESS [Suspect]
     Active Substance: RALTEGRAVIR POTASSIUM
     Indication: HIV INFECTION
     Dosage: 400.0 MILLIGRAM, 2 EVERY 1 DAYS
     Route: 065
  15. ABACAVIR. [Interacting]
     Active Substance: ABACAVIR
     Indication: HIV INFECTION
     Dosage: 600.0 MILLIGRAM
     Route: 065
  16. CYCLOSPORINE. [Interacting]
     Active Substance: CYCLOSPORINE
     Dosage: 20.0 MILLIGRAM
     Route: 065
  17. CYCLOSPORINE. [Interacting]
     Active Substance: CYCLOSPORINE
     Dosage: UNK
     Route: 065
  18. LAMIVUDINE. [Interacting]
     Active Substance: LAMIVUDINE
     Indication: HIV INFECTION
     Dosage: 400.0 MILLIGRAM
     Route: 065
  19. LAMIVUDINE. [Interacting]
     Active Substance: LAMIVUDINE
     Dosage: UNK
     Route: 065
  20. MYCOPHENOLATE MOFETIL. [Interacting]
     Active Substance: MYCOPHENOLATE MOFETIL
     Indication: IMMUNOSUPPRESSANT DRUG THERAPY
     Route: 065
  21. RITONAVIR. [Interacting]
     Active Substance: RITONAVIR
     Dosage: 100.0 MILLIGRAM, 2 EVERY 1 DAYS
  22. ZIDOVUDINE. [Interacting]
     Active Substance: ZIDOVUDINE
     Indication: HIV INFECTION
     Dosage: UNK
     Route: 065
  23. CYCLOSPORINE. [Interacting]
     Active Substance: CYCLOSPORINE
     Dosage: 3.0 MILLIGRAM
     Route: 065
  24. DARUNAVIR [Interacting]
     Active Substance: DARUNAVIR
     Indication: HIV INFECTION
     Dosage: 600.0 MILLIGRAM, 2 EVERY 1 DAYS
  25. FOSAMPRENAVIR CALCIUM. [Interacting]
     Active Substance: FOSAMPRENAVIR CALCIUM
     Indication: HIV INFECTION
     Dosage: 700.0 MILLIGRAM, 2 EVERY 1 DAYS
     Route: 065
  26. RITONAVIR. [Interacting]
     Active Substance: RITONAVIR
     Dosage: 100.0 MILLIGRAM, 2 EVERY 1 DAYS
  27. CYCLOSPORINE. [Interacting]
     Active Substance: CYCLOSPORINE
     Route: 065
  28. DARUNAVIR [Interacting]
     Active Substance: DARUNAVIR
     Dosage: 600.0 MILLIGRAM, 2 EVERY 1 DAYS
     Route: 065
  29. ETRAVIRINE [Interacting]
     Active Substance: ETRAVIRINE
     Indication: HIV INFECTION
     Dosage: 200.0 MILLIGRAM, 2 EVERY 1 DAYS
     Route: 065
  30. TACROLIMUS. [Interacting]
     Active Substance: TACROLIMUS
     Dosage: 0.1 MILLIGRAM
     Route: 065
  31. TACROLIMUS. [Interacting]
     Active Substance: TACROLIMUS
     Indication: IMMUNOSUPPRESSANT DRUG THERAPY
     Dosage: 0.1 MILLIGRAM
     Route: 065
  32. ABACAVIR. [Interacting]
     Active Substance: ABACAVIR
     Dosage: 600.0 MILLIGRAM
     Route: 065
  33. CYCLOSPORINE. [Interacting]
     Active Substance: CYCLOSPORINE
     Dosage: 10.0 MILLIGRAM, 2 EVERY 1 DAYS
     Route: 065
  34. COBICISTAT (+) ELVITEGRAVIR (+) EMTRICITABINE (+) TENOFOVIR ALAFENAMID [Interacting]
     Active Substance: COBICISTAT\ELVITEGRAVIR\EMTRICITABINE\TENOFOVIR ALAFENAMIDE FUMARATE
     Indication: HIV INFECTION
     Dosage: 1.0 DOSAGE FORMS
     Route: 065
  35. LAMIVUDINE. [Interacting]
     Active Substance: LAMIVUDINE
     Dosage: 300.0 MILLIGRAM
     Route: 048
  36. RITONAVIR. [Interacting]
     Active Substance: RITONAVIR
     Indication: HIV INFECTION
     Dosage: 100.0 MILLIGRAM
     Route: 065
  37. RITONAVIR. [Interacting]
     Active Substance: RITONAVIR
     Dosage: 100.0 MILLIGRAM, 2 EVERY 1 DAYS
     Route: 065
  38. TACROLIMUS. [Interacting]
     Active Substance: TACROLIMUS
     Dosage: 0.2 MILLIGRAM
     Route: 065
  39. TACROLIMUS. [Interacting]
     Active Substance: TACROLIMUS
     Dosage: 0.25 MILLIGRAM, 1 EVERY 1 DAYS
     Route: 065
  40. TRIZIVIR [Interacting]
     Active Substance: ABACAVIR SULFATE\LAMIVUDINE\ZIDOVUDINE
     Indication: HIV INFECTION
     Dosage: 1.0 DOSAGE FORM, 2 EVERY 1 DAY
     Route: 065

REACTIONS (3)
  - Drug level increased [Unknown]
  - Heart transplant rejection [Unknown]
  - Drug interaction [Unknown]
